FAERS Safety Report 6336783-3 (Version None)
Quarter: 2009Q3

REPORT INFORMATION
  Report Type: 
  Country: None (occurrence: None)
  Receive Date: 20090901
  Receipt Date: 20090824
  Transmission Date: 20100115
  Serious: Yes (Other)
  Sender: FDA-Public Use
  Company Number: US-AMGEN-QUU361523

PATIENT
  Sex: Female

DRUGS (2)
  1. ENBREL [Suspect]
     Indication: RHEUMATOID ARTHRITIS
     Route: 058
     Dates: start: 20090301
  2. BETASERON [Concomitant]

REACTIONS (8)
  - ASTHENIA [None]
  - DYSARTHRIA [None]
  - EPISTAXIS [None]
  - FATIGUE [None]
  - INCREASED TENDENCY TO BRUISE [None]
  - MULTIPLE SCLEROSIS [None]
  - PLATELET COUNT DECREASED [None]
  - TEMPERATURE INTOLERANCE [None]
